FAERS Safety Report 9064877 (Version 1)
Quarter: 2013Q1

REPORT INFORMATION
  Report Type: Report from Study
  Country: KR (occurrence: KR)
  Receive Date: 20130206
  Receipt Date: 20130206
  Transmission Date: 20140127
  Serious: Yes (Other)
  Sender: FDA-Public Use
  Company Number: KR-ROCHE-1184468

PATIENT
  Sex: 0

DRUGS (3)
  1. CAPECITABINE [Suspect]
     Indication: HEPATIC CANCER
     Route: 048
  2. DOXORUBICIN [Suspect]
     Indication: HEPATIC CANCER
     Route: 042
  3. CISPLATIN [Suspect]
     Indication: HEPATIC CANCER
     Route: 065

REACTIONS (9)
  - Anaemia [Unknown]
  - Neutropenia [Unknown]
  - Thrombocytopenia [Unknown]
  - Stomatitis [Unknown]
  - Nausea [Unknown]
  - Vomiting [Unknown]
  - Diarrhoea [Unknown]
  - Hepatic function abnormal [Unknown]
  - Nephropathy toxic [Unknown]
